FAERS Safety Report 14243934 (Version 2)
Quarter: 2017Q4

REPORT INFORMATION
  Report Type: Spontaneous
  Country: PL (occurrence: PL)
  Receive Date: 20171201
  Receipt Date: 20171214
  Transmission Date: 20180321
  Serious: Yes (Other)
  Sender: FDA-Public Use
  Company Number: PL-PFIZER INC-2017511478

PATIENT
  Age: 82 Year
  Sex: Male

DRUGS (7)
  1. POTAZEK [Concomitant]
  2. ACARD [Concomitant]
     Active Substance: ASPIRIN
  3. CARDURA [Suspect]
     Active Substance: DOXAZOSIN MESYLATE
     Dosage: 4 MG, 1X/DAY, FOR NIGHT
  4. DIURESIN [Concomitant]
     Active Substance: INDAPAMIDE
  5. SUVARDIO [Concomitant]
     Active Substance: ROSUVASTATIN CALCIUM
  6. DEBRETIN [Concomitant]
  7. MILURIT [Concomitant]
     Active Substance: ALLOPURINOL

REACTIONS (2)
  - Pruritus [Unknown]
  - Cataract [Unknown]
